FAERS Safety Report 7968074-9 (Version None)
Quarter: 2011Q4

REPORT INFORMATION
  Report Type: 
  Country: None (occurrence: None)
  Receive Date: 20111209
  Receipt Date: 20111124
  Transmission Date: 20120403
  Serious: Yes (Hospitalization, Other)
  Sender: FDA-Public Use
  Company Number: ES-WATSON-2011-20465

PATIENT
  Age: 62 Year
  Sex: Female

DRUGS (1)
  1. DOXAZOSIN MESYLATE [Suspect]
     Indication: HYPERTENSION
     Dosage: 4 MG, DAILY
     Route: 048
     Dates: start: 20110701, end: 20111029

REACTIONS (6)
  - HAEMATOMA [None]
  - HAEMATURIA [None]
  - EPISTAXIS [None]
  - PROTHROMBIN LEVEL DECREASED [None]
  - PRODUCT SUBSTITUTION ISSUE [None]
  - PLATELET COUNT DECREASED [None]
